FAERS Safety Report 5580203-3 (Version None)
Quarter: 2007Q4

REPORT INFORMATION
  Report Type: 
  Country: None (occurrence: None)
  Receive Date: 20071227
  Receipt Date: 20071227
  Transmission Date: 20080405
  Serious: Yes (Hospitalization, Other)
  Sender: FDA-Public Use
  Company Number: None

PATIENT
  Age: 61 Year
  Sex: Female
  Weight: 58.9676 kg

DRUGS (2)
  1. CYMBALTA [Suspect]
     Indication: DEPRESSION
     Dosage: 20 MG FOR 9 DAYS DAILY PO
     Route: 048
     Dates: start: 20071117, end: 20071125
  2. CYMBALTA [Suspect]
     Indication: SEASONAL AFFECTIVE DISORDER
     Dosage: 40 MG FOR 15 DAYS DAILY PO
     Route: 048
     Dates: start: 20071126, end: 20071210

REACTIONS (8)
  - BALANCE DISORDER [None]
  - CONFUSIONAL STATE [None]
  - FEELING ABNORMAL [None]
  - FEELING HOT [None]
  - HALLUCINATION, AUDITORY [None]
  - HYPERACUSIS [None]
  - NIGHTMARE [None]
  - PARALYSIS [None]
